FAERS Safety Report 11936633 (Version 2)
Quarter: 2016Q1

REPORT INFORMATION
  Report Type: Spontaneous
  Country: US (occurrence: US)
  Receive Date: 20160121
  Receipt Date: 20160223
  Transmission Date: 20160526
  Serious: Yes (Other)
  Sender: FDA-Public Use
  Company Number: US-SMITH AND NEPHEW, INC-2016SMT00022

PATIENT
  Age: 76 Year
  Sex: Male
  Weight: 95.24 kg

DRUGS (4)
  1. ECOTRIN [Concomitant]
     Active Substance: ASPIRIN
     Indication: TOOTHACHE
     Dosage: UNK, AS NEEDED
  2. ECOTRIN [Concomitant]
     Active Substance: ASPIRIN
     Indication: SENSITIVITY TO WEATHER CHANGE
  3. REGRANEX [Suspect]
     Active Substance: BECAPLERMIN
     Indication: SKIN ULCER
     Dosage: UNK, ONCE
     Route: 061
     Dates: start: 201510, end: 201510
  4. CILOSTAZOL. [Concomitant]
     Active Substance: CILOSTAZOL
     Indication: PROMOTION OF PERIPHERAL CIRCULATION
     Dosage: UNK
     Dates: start: 20151014

REACTIONS (2)
  - Wound infection pseudomonas [Unknown]
  - Wound complication [Unknown]

NARRATIVE: CASE EVENT DATE: 20160105
